FAERS Safety Report 25034425 (Version 1)
Quarter: 2025Q1

REPORT INFORMATION
  Report Type: Spontaneous
  Country: US (occurrence: US)
  Receive Date: 20250304
  Receipt Date: 20250304
  Transmission Date: 20250409
  Serious: Yes (Other)
  Sender: ALEMBIC
  Company Number: US-ALEMBIC PHARMACUETICALS LIMITED-2025SCAL000136

PATIENT

DRUGS (1)
  1. BRIMONIDINE TARTRATE AND TIMOLOL MALEATE [Suspect]
     Active Substance: BRIMONIDINE TARTRATE\TIMOLOL MALEATE
     Indication: Blindness
     Route: 047
     Dates: start: 20250211, end: 20250214

REACTIONS (4)
  - Blindness [Unknown]
  - Vision blurred [Not Recovered/Not Resolved]
  - Product dose omission issue [Unknown]
  - Product use issue [Unknown]

NARRATIVE: CASE EVENT DATE: 20250215
